FAERS Safety Report 18325347 (Version 1)
Quarter: 2020Q3

REPORT INFORMATION
  Report Type: Spontaneous
  Country: None (occurrence: US)
  Receive Date: 20200929
  Receipt Date: 20200929
  Transmission Date: 20201103
  Serious: No
  Sender: FDA-Public Use
  Company Number: US-MILLICENT HOLDINGS LTD.-MILL20200065

PATIENT
  Age: 68 Year
  Sex: Female

DRUGS (3)
  1. INTRAROSA [Suspect]
     Active Substance: PRASTERONE
     Indication: MENOPAUSE
     Dosage: 1
     Route: 067
     Dates: start: 202008, end: 20200827
  2. INTRAROSA [Suspect]
     Active Substance: PRASTERONE
     Indication: VULVOVAGINAL DRYNESS
  3. INTRAROSA [Suspect]
     Active Substance: PRASTERONE
     Indication: VULVOVAGINAL BURNING SENSATION

REACTIONS (8)
  - Urinary incontinence [Recovering/Resolving]
  - Adverse drug reaction [Recovering/Resolving]
  - Vulvovaginal burning sensation [Recovering/Resolving]
  - Dysuria [Recovering/Resolving]
  - Micturition urgency [Recovering/Resolving]
  - Condition aggravated [Recovering/Resolving]
  - Urine abnormality [Recovering/Resolving]
  - Off label use [Unknown]

NARRATIVE: CASE EVENT DATE: 20200827
